FAERS Safety Report 4804256-2 (Version None)
Quarter: 2005Q4

REPORT INFORMATION
  Report Type: 
  Country: None (occurrence: None)
  Receive Date: 20051020
  Receipt Date: 20051006
  Transmission Date: 20060501
  Serious: Yes (Hospitalization)
  Sender: FDA-Public Use
  Company Number: JP-JNJFOC-20051002226

PATIENT
  Age: 84 Year
  Sex: Female

DRUGS (1)
  1. DUROTEP [Suspect]
     Indication: INTENTIONAL DRUG MISUSE
     Route: 062

REACTIONS (2)
  - DRUG ADMINISTRATION ERROR [None]
  - HYPOXIA [None]
